FAERS Safety Report 8004454-3 (Version None)
Quarter: 2011Q4

REPORT INFORMATION
  Report Type: 
  Country: None (occurrence: None)
  Receive Date: 20111221
  Receipt Date: 20111221
  Transmission Date: 20120403
  Serious: Yes (Disabling)
  Sender: FDA-Public Use
  Company Number: None

PATIENT
  Age: 52 Year
  Sex: Male
  Weight: 88.4514 kg

DRUGS (1)
  1. LIPITOR [Suspect]
     Indication: BLOOD CHOLESTEROL INCREASED
     Dosage: 40 MG QD ORAL
     Route: 048
     Dates: start: 20050101, end: 20080101

REACTIONS (5)
  - ARTHRALGIA [None]
  - MYALGIA [None]
  - PAIN IN EXTREMITY [None]
  - PAIN [None]
  - MUSCLE ATROPHY [None]
